FAERS Safety Report 13169526 (Version 2)
Quarter: 2018Q1

REPORT INFORMATION
  Report Type: Spontaneous
  Country: US (occurrence: US)
  Receive Date: 20170131
  Receipt Date: 20180126
  Transmission Date: 20180508
  Serious: No
  Sender: FDA-Public Use
  Company Number: US-ABBVIE-16K-163-1597930-00

PATIENT
  Sex: Male

DRUGS (3)
  1. HUMIRA [Suspect]
     Active Substance: ADALIMUMAB
     Indication: CROHN^S DISEASE
  2. HUMIRA [Suspect]
     Active Substance: ADALIMUMAB
     Indication: RHEUMATOID ARTHRITIS
  3. HUMIRA [Suspect]
     Active Substance: ADALIMUMAB
     Indication: COLITIS ULCERATIVE
     Route: 058

REACTIONS (16)
  - Frustration tolerance decreased [Unknown]
  - Pain in extremity [Unknown]
  - Feeling of despair [Unknown]
  - Feeling abnormal [Unknown]
  - Mobility decreased [Unknown]
  - Syncope [Unknown]
  - General physical health deterioration [Unknown]
  - Abdominal pain upper [Unknown]
  - Apathy [Unknown]
  - Quality of life decreased [Unknown]
  - Depressed mood [Unknown]
  - Arthralgia [Unknown]
  - Impaired work ability [Unknown]
  - Emotional disorder [Unknown]
  - Pain [Not Recovered/Not Resolved]
  - Anger [Unknown]
